FAERS Safety Report 16953515 (Version 1)
Quarter: 2019Q4

REPORT INFORMATION
  Report Type: Report from Study
  Country: KR (occurrence: KR)
  Receive Date: 20191023
  Receipt Date: 20191023
  Transmission Date: 20200122
  Serious: Yes (Death, Hospitalization)
  Sender: FDA-Public Use
  Company Number: KR-DSJP-DSJ-2019-126908

PATIENT

DRUGS (11)
  1. VASTINAN [Concomitant]
     Active Substance: TRIMETAZIDINE DIHYDROCHLORIDE
     Dosage: 1 DF, BID
     Route: 065
     Dates: start: 20190116
  2. SIGMART [Concomitant]
     Active Substance: NICORANDIL
     Dosage: 1 DF, BID
     Route: 065
     Dates: start: 20190116
  3. ATOZET [Concomitant]
     Active Substance: ATORVASTATIN CALCIUM\EZETIMIBE
     Dosage: 1 DF, QD
     Route: 065
     Dates: start: 20180919
  4. AMARYL [Concomitant]
     Active Substance: GLIMEPIRIDE
     Dosage: 1 DF, QD
     Route: 065
     Dates: start: 20180918
  5. EDOXABAN [Suspect]
     Active Substance: EDOXABAN TOSYLATE
     Indication: PRODUCT USED FOR UNKNOWN INDICATION
     Dosage: 30 MG, QD
     Route: 048
     Dates: start: 20190116, end: 20190912
  6. SUPERPIRIN [Concomitant]
     Dosage: 1 DF, QD
     Route: 065
     Dates: start: 20180902
  7. GLIATAMIN [Concomitant]
     Active Substance: CHOLINE ALFOSCERATE
     Dosage: 1 DF, BID
     Route: 065
     Dates: start: 20180919
  8. TELMINUVO [Concomitant]
     Active Substance: LEVAMLODIPINE\TELMISARTAN
     Dosage: 1 DF, QD
     Route: 065
     Dates: start: 20180919
  9. ESOMEZOL                           /01479304/ [Concomitant]
     Active Substance: ESOMEPRAZOLE STRONTIUM
     Dosage: 1 DF, BID
     Route: 065
     Dates: start: 20180919
  10. SERMION                            /00396401/ [Concomitant]
     Active Substance: NICERGOLINE
     Dosage: 1 DF, BID
     Route: 065
     Dates: start: 20180902
  11. ZEMIGLO [Concomitant]
     Dosage: 1 DF, QD
     Route: 065
     Dates: start: 20180919

REACTIONS (3)
  - Pneumonia [Fatal]
  - Oesophageal carcinoma [Fatal]
  - Lung consolidation [Fatal]

NARRATIVE: CASE EVENT DATE: 20190312
